FAERS Safety Report 13972306 (Version 1)
Quarter: 2017Q3

REPORT INFORMATION
  Report Type: Spontaneous
  Country: US (occurrence: None)
  Receive Date: 20170914
  Receipt Date: 20170914
  Transmission Date: 20171128
  Serious: No
  Sender: FDA-Public Use
  Company Number: None

PATIENT
  Sex: Male

DRUGS (1)
  1. STIVARGA [Suspect]
     Active Substance: REGORAFENIB
     Indication: COLON NEOPLASM
     Dosage: 160MG (FOUR 40MG TABLETS) DAILY ON DAYS 1-21 OF 28DAY CYCLE BY MOUTH
     Route: 048
     Dates: start: 20170707, end: 20170913

REACTIONS (1)
  - Blister [None]
